FAERS Safety Report 4965987-7 (Version None)
Quarter: 2006Q1

REPORT INFORMATION
  Report Type: 
  Country: None (occurrence: None)
  Receive Date: 20060303
  Receipt Date: 20060320
  Transmission Date: 20060701
  Serious: Yes (Death, Other)
  Sender: FDA-Public Use
  Company Number: USA-2006-0023833

PATIENT
  Age: 51 Year
  Sex: Male

DRUGS (3)
  1. OXYCONTIN [Suspect]
     Dosage: 80 MG, Q12H, INTRAVENOUS
     Route: 042
     Dates: start: 20030301, end: 20050801
  2. PERCODAN (HOMATROPINE TEREPHTHALATE, PHENACETIN, OXYCODONE TEREPHTHALA [Concomitant]
  3. VIAGRA [Concomitant]

REACTIONS (3)
  - ACCIDENTAL OVERDOSE [None]
  - CORONARY ARTERY DISEASE [None]
  - INTENTIONAL DRUG MISUSE [None]
